FAERS Safety Report 8310087-1 (Version None)
Quarter: 2012Q2

REPORT INFORMATION
  Report Type: 
  Country: None (occurrence: None)
  Receive Date: 20120425
  Receipt Date: 20120416
  Transmission Date: 20120825
  Serious: Yes (Death, Hospitalization, Other)
  Sender: FDA-Public Use
  Company Number: US-MUTUAL PHARMACEUTICAL COMPANY, INC.-CLHC20120019

PATIENT
  Age: 56 Year
  Sex: Female

DRUGS (2)
  1. COLCHICINE [Suspect]
     Route: 042
     Dates: start: 20070330, end: 20070330
  2. COLCHICINE [Suspect]
     Indication: BACK PAIN
     Route: 042
     Dates: start: 20070101, end: 20070301

REACTIONS (21)
  - DRUG DISPENSING ERROR [None]
  - BRADYCARDIA [None]
  - LEUKOPENIA [None]
  - OVERDOSE [None]
  - RENAL FAILURE [None]
  - ANURIA [None]
  - TROPONIN I INCREASED [None]
  - CARDIAC ARREST [None]
  - THROMBOCYTOPENIA [None]
  - HYPOTENSION [None]
  - VOMITING [None]
  - LACTIC ACIDOSIS [None]
  - NAUSEA [None]
  - ACUTE RESPIRATORY DISTRESS SYNDROME [None]
  - CHEST PAIN [None]
  - DIARRHOEA [None]
  - ECHOCARDIOGRAM ABNORMAL [None]
  - LEUKOCYTOSIS [None]
  - RHABDOMYOLYSIS [None]
  - ASPARTATE AMINOTRANSFERASE INCREASED [None]
  - ALANINE AMINOTRANSFERASE INCREASED [None]
